FAERS Safety Report 16377178 (Version 1)
Quarter: 2019Q2

REPORT INFORMATION
  Report Type: Spontaneous
  Country: US (occurrence: US)
  Receive Date: 20190425
  Receipt Date: 20190425
  Transmission Date: 20190711
  Serious: Yes (Hospitalization)
  Sender: FDA-Public Use
  Company Number: None

PATIENT
  Age: 78 Year
  Sex: Male

DRUGS (1)
  1. PROMACTA [Suspect]
     Active Substance: ELTROMBOPAG OLAMINE
     Route: 048

REACTIONS (5)
  - Cardiac failure congestive [None]
  - Pneumonia [None]
  - Fluid retention [None]
  - Diarrhoea [None]
  - Cellulitis [None]

NARRATIVE: CASE EVENT DATE: 20190411
